FAERS Safety Report 18423411 (Version 1)
Quarter: 2020Q4

REPORT INFORMATION
  Report Type: Spontaneous
  Country: PT (occurrence: PT)
  Receive Date: 20201023
  Receipt Date: 20201023
  Transmission Date: 20210114
  Serious: Yes (Hospitalization)
  Sender: FDA-Public Use
  Company Number: NVSC2020PT281581

PATIENT
  Age: 39 Year
  Sex: Female

DRUGS (1)
  1. COSENTYX [Suspect]
     Active Substance: SECUKINUMAB
     Indication: SPONDYLITIS
     Dosage: UNK
     Route: 058
     Dates: start: 20181119, end: 20190225

REACTIONS (2)
  - Cranial nerve disorder [Recovered/Resolved with Sequelae]
  - Tolosa-Hunt syndrome [Recovered/Resolved with Sequelae]

NARRATIVE: CASE EVENT DATE: 20190225
